FAERS Safety Report 8591652-3 (Version None)
Quarter: 2012Q3

REPORT INFORMATION
  Report Type: 
  Country: None (occurrence: None)
  Receive Date: 20120814
  Receipt Date: 20120807
  Transmission Date: 20120928
  Serious: Yes (Disabling)
  Sender: FDA-Public Use
  Company Number: JP-JNJFOC-20120611620

PATIENT
  Sex: Female
  Weight: 67 kg

DRUGS (37)
  1. DOXORUBICIN HYDROCHLORIDE [Suspect]
     Dosage: CYCLE 9
     Route: 042
     Dates: start: 20110302, end: 20110302
  2. DOXORUBICIN HYDROCHLORIDE [Suspect]
     Dosage: CYCLE 1
     Route: 042
     Dates: start: 20100203, end: 20100203
  3. MUCOSTA [Concomitant]
     Route: 048
     Dates: start: 20100929, end: 20101028
  4. DEXAMETHASONE SODIUM PHOSPHATE [Concomitant]
     Route: 042
     Dates: start: 20100602, end: 20100602
  5. DOXORUBICIN HYDROCHLORIDE [Suspect]
     Dosage: CYCLE 6
     Route: 042
     Dates: start: 20100929, end: 20100929
  6. MUCOSTA [Concomitant]
     Route: 048
     Dates: start: 20101124, end: 20101223
  7. MUCOSTA [Concomitant]
     Route: 048
     Dates: start: 20100203
  8. DEXAMETHASONE SODIUM PHOSPHATE [Concomitant]
     Route: 042
     Dates: start: 20100407, end: 20100407
  9. DEXAMETHASONE SODIUM PHOSPHATE [Concomitant]
     Route: 042
     Dates: start: 20100203
  10. GRANISETRON [Concomitant]
     Route: 042
     Dates: start: 20110126, end: 20110126
  11. GRANISETRON [Concomitant]
     Route: 042
     Dates: start: 20111109, end: 20111109
  12. DOXORUBICIN HYDROCHLORIDE [Suspect]
     Dosage: CYCLE 12
     Route: 042
     Dates: start: 20110907, end: 20110907
  13. MUCOSTA [Concomitant]
     Indication: PROPHYLAXIS
     Route: 048
     Dates: start: 20110302, end: 20110401
  14. DEXAMETHASONE SODIUM PHOSPHATE [Concomitant]
     Route: 042
     Dates: start: 20100804, end: 20100804
  15. GRANISETRON [Concomitant]
     Indication: PROPHYLAXIS
     Route: 042
     Dates: start: 20110302, end: 20110302
  16. GRANISETRON [Concomitant]
     Route: 042
     Dates: start: 20110622, end: 20110622
  17. GRANISETRON [Concomitant]
     Route: 042
     Dates: start: 20100804, end: 20100804
  18. GRANISETRON [Concomitant]
     Route: 042
     Dates: start: 20100929, end: 20100929
  19. DOXORUBICIN HYDROCHLORIDE [Suspect]
     Dosage: CYCLE 4
     Route: 042
     Dates: start: 20100602, end: 20100602
  20. DOXORUBICIN HYDROCHLORIDE [Suspect]
     Dosage: CYCLE 13
     Route: 042
     Dates: start: 20111109, end: 20111109
  21. MUCOSTA [Concomitant]
     Route: 048
     Dates: start: 20100804, end: 20100902
  22. MUCOSTA [Concomitant]
     Route: 048
     Dates: start: 20100602, end: 20100701
  23. GRANISETRON [Concomitant]
     Route: 042
     Dates: start: 20100602, end: 20100602
  24. GRANISETRON [Concomitant]
     Route: 042
     Dates: start: 20110420, end: 20110420
  25. GRANISETRON [Concomitant]
     Route: 042
     Dates: start: 20100407, end: 20100407
  26. GRANISETRON [Concomitant]
     Route: 042
     Dates: start: 20101124, end: 20101124
  27. GRANISETRON [Concomitant]
     Route: 042
     Dates: start: 20110907, end: 20110907
  28. DOXORUBICIN HYDROCHLORIDE [Suspect]
     Dosage: CYCLE 10
     Route: 042
     Dates: start: 20110420, end: 20110420
  29. DOXORUBICIN HYDROCHLORIDE [Suspect]
     Dosage: CYCLE 7
     Route: 042
     Dates: start: 20101124, end: 20101124
  30. DOXORUBICIN HYDROCHLORIDE [Suspect]
     Dosage: CYCLE 2
     Route: 042
     Dates: start: 20100303, end: 20100303
  31. MUCOSTA [Concomitant]
     Route: 048
     Dates: start: 20110126, end: 20110225
  32. DEXAMETHASONE SODIUM PHOSPHATE [Concomitant]
     Indication: PROPHYLAXIS
     Route: 042
     Dates: start: 20100929, end: 20100929
  33. DOXORUBICIN HYDROCHLORIDE [Suspect]
     Indication: OVARIAN CANCER RECURRENT
     Dosage: CYCLE 8
     Route: 042
     Dates: start: 20110126, end: 20110126
  34. DOXORUBICIN HYDROCHLORIDE [Suspect]
     Dosage: CYCLE 11
     Route: 042
     Dates: start: 20110622, end: 20110622
  35. DOXORUBICIN HYDROCHLORIDE [Suspect]
     Dosage: CYCLE 5
     Route: 042
     Dates: start: 20100804, end: 20100804
  36. DOXORUBICIN HYDROCHLORIDE [Suspect]
     Dosage: CYCLE 3
     Route: 042
     Dates: start: 20100407, end: 20100407
  37. MUCOSTA [Concomitant]
     Route: 048
     Dates: start: 20100407, end: 20100506

REACTIONS (1)
  - INTERSTITIAL LUNG DISEASE [None]
